FAERS Safety Report 25069339 (Version 1)
Quarter: 2025Q1

REPORT INFORMATION
  Report Type: Spontaneous
  Country: IT (occurrence: IT)
  Receive Date: 20250312
  Receipt Date: 20250312
  Transmission Date: 20250408
  Serious: Yes (Other)
  Sender: AMGEN
  Company Number: IT-AMGEN-ITASP2025044186

PATIENT

DRUGS (2)
  1. MVASI [Suspect]
     Active Substance: BEVACIZUMAB-AWWB
     Indication: Antiangiogenic therapy
  2. OFLOXACIN [Concomitant]
     Active Substance: OFLOXACIN
     Dosage: UNK UNK, BID
     Route: 061

REACTIONS (2)
  - Endophthalmitis [Unknown]
  - Off label use [Unknown]
